FAERS Safety Report 7020250-8 (Version None)
Quarter: 2010Q3

REPORT INFORMATION
  Report Type: 
  Country: None (occurrence: None)
  Receive Date: 20100927
  Receipt Date: 20100920
  Transmission Date: 20110219
  Serious: Yes (Death)
  Sender: FDA-Public Use
  Company Number: UTC-001467

PATIENT
  Age: 55 Year
  Sex: Male
  Weight: 104.5 kg

DRUGS (9)
  1. TYVASO [Suspect]
     Dosage: 216 MCG (54 MCG, 4 IN 1 D), INHALATION
     Route: 055
     Dates: start: 20100222, end: 20100816
  2. ALDACTONE [Concomitant]
  3. REVATIO [Concomitant]
  4. NEURONTIN [Concomitant]
  5. VITAMIN D [Concomitant]
  6. KLOR-CON [Concomitant]
  7. GLIMEPIRIDE [Concomitant]
  8. ULORIC [Concomitant]
  9. ASPIRIN [Concomitant]

REACTIONS (1)
  - MYOCARDIAL INFARCTION [None]
